FAERS Safety Report 5851031-6 (Version None)
Quarter: 2008Q3

REPORT INFORMATION
  Report Type: 
  Country: None (occurrence: None)
  Receive Date: 20080820
  Receipt Date: 20080529
  Transmission Date: 20090109
  Serious: No
  Sender: FDA-Public Use
  Company Number: US-BAYER-200824768NA

PATIENT
  Age: 48 Year
  Sex: Female
  Weight: 76 kg

DRUGS (1)
  1. MIRENA [Suspect]
     Indication: HAEMORRHAGE
     Route: 015
     Dates: start: 20080401

REACTIONS (1)
  - VAGINAL HAEMORRHAGE [None]
